FAERS Safety Report 4898157-1 (Version None)
Quarter: 2006Q1

REPORT INFORMATION
  Report Type: 
  Country: None (occurrence: None)
  Receive Date: 20060106
  Receipt Date: 20051031
  Transmission Date: 20060701
  Serious: Yes (Other)
  Sender: FDA-Public Use
  Company Number: HQWYE388103NOV05

PATIENT
  Age: 41 Year
  Sex: Male
  Weight: 97.61 kg

DRUGS (1)
  1. PRIMATENE MIST [Suspect]
     Indication: ASTHMA
     Dosage: 1 PUFF AS NEEDED, INHALATION
     Route: 055
     Dates: start: 20050901

REACTIONS (1)
  - COUGH [None]
